FAERS Safety Report 5786036-7 (Version None)
Quarter: 2008Q2

REPORT INFORMATION
  Report Type: 
  Country: None (occurrence: None)
  Receive Date: 20080620
  Receipt Date: 20080620
  Transmission Date: 20081010
  Serious: Yes (Other)
  Sender: FDA-Public Use
  Company Number: None

PATIENT
  Age: 37 Year
  Sex: Female
  Weight: 73.9363 kg

DRUGS (1)
  1. CHANTIX [Suspect]
     Indication: SMOKING CESSATION THERAPY
     Dosage: 1 MG 2 DAILY PO
     Route: 048
     Dates: start: 20080603, end: 20080615

REACTIONS (4)
  - ANXIETY [None]
  - DEPRESSED MOOD [None]
  - LACRIMATION INCREASED [None]
  - SOMNOLENCE [None]
